FAERS Safety Report 19772798 (Version 3)
Quarter: 2022Q1

REPORT INFORMATION
  Report Type: Spontaneous
  Country: US (occurrence: US)
  Receive Date: 20210901
  Receipt Date: 20220301
  Transmission Date: 20220423
  Serious: No
  Sender: FDA-Public Use
  Company Number: US-GILEAD-2021-0545327

PATIENT
  Age: 61 Year
  Sex: Male

DRUGS (2)
  1. TRUVADA [Suspect]
     Active Substance: EMTRICITABINE\TENOFOVIR DISOPROXIL FUMARATE
     Indication: HIV infection
     Dosage: UNK
     Route: 048
     Dates: start: 20101201, end: 20160630
  2. TRUVADA [Suspect]
     Active Substance: EMTRICITABINE\TENOFOVIR DISOPROXIL FUMARATE
     Dosage: UNK
     Route: 048
     Dates: start: 20101209, end: 20160702

REACTIONS (2)
  - Bone density decreased [Unknown]
  - Osteopenia [Recovered/Resolved]

NARRATIVE: CASE EVENT DATE: 20170101
